FAERS Safety Report 11854394 (Version 4)
Quarter: 2016Q1

REPORT INFORMATION
  Report Type: Report from Study
  Country: US (occurrence: US)
  Receive Date: 20151221
  Receipt Date: 20160204
  Transmission Date: 20160526
  Serious: Yes (Other)
  Sender: FDA-Public Use
  Company Number: US-AMGEN-USASL2015132936

PATIENT
  Age: 73 Year
  Sex: Female

DRUGS (2)
  1. ENBREL [Suspect]
     Active Substance: ETANERCEPT
     Indication: PSORIATIC ARTHROPATHY
     Dosage: 50 MG, QWK
     Route: 065
  2. ENBREL [Suspect]
     Active Substance: ETANERCEPT
     Indication: PSORIASIS

REACTIONS (12)
  - Injection site pain [Unknown]
  - Pain in extremity [Unknown]
  - Injection site mass [Recovered/Resolved]
  - Drug dose omission [Unknown]
  - Pneumonia [Unknown]
  - Device use error [Unknown]
  - Musculoskeletal discomfort [Unknown]
  - Malaise [Unknown]
  - Pleurisy [Unknown]
  - Device issue [Unknown]
  - Injection site extravasation [Unknown]
  - Injection site discomfort [Unknown]

NARRATIVE: CASE EVENT DATE: 2015
